FAERS Safety Report 9750950 (Version 2)
Quarter: 2013Q4

REPORT INFORMATION
  Report Type: Spontaneous
  Country: US (occurrence: US)
  Receive Date: 20131212
  Receipt Date: 20131213
  Transmission Date: 20140711
  Serious: No
  Sender: FDA-Public Use
  Company Number: US-TEVA-399576USA

PATIENT
  Age: 25 Year
  Sex: Female
  Weight: 63.56 kg

DRUGS (3)
  1. PARAGARD 380A [Suspect]
     Indication: CONTRACEPTION
     Route: 015
     Dates: start: 201301, end: 20130418
  2. VITAMIN D [Concomitant]
     Indication: VITAMIN D DECREASED
     Dates: start: 20130418
  3. TRIAMCINOLONE [Concomitant]
     Indication: ECZEMA
     Route: 061
     Dates: start: 20121002

REACTIONS (2)
  - Device expulsion [Recovered/Resolved]
  - Vitamin D decreased [Not Recovered/Not Resolved]
